FAERS Safety Report 23790275 (Version 1)
Quarter: 2024Q2

REPORT INFORMATION
  Report Type: Report from Study
  Country: CO (occurrence: CO)
  Receive Date: 20240427
  Receipt Date: 20240427
  Transmission Date: 20240716
  Serious: Yes (Other)
  Sender: FDA-Public Use
  Company Number: CO-IPSEN Group, Research and Development-2024-03240

PATIENT
  Age: 40 Year
  Sex: Male
  Weight: 49 kg

DRUGS (4)
  1. CABOMETYX [Suspect]
     Active Substance: CABOZANTINIB S-MALATE
     Indication: Renal cell carcinoma
     Dosage: 60 MG, QD
     Route: 048
     Dates: start: 20240222
  2. HYDROMORPHONE [Concomitant]
     Active Substance: HYDROMORPHONE
     Indication: Renal pain
     Dosage: 25 MG, AS NEEDED EVERY 4 TO 5 HOURS
     Route: 048
     Dates: start: 202308
  3. PREGABALIN [Concomitant]
     Active Substance: PREGABALIN
     Indication: Renal pain
     Dosage: 75 MG, PRN
     Route: 048
     Dates: start: 202308
  4. QUETIAPINE [Concomitant]
     Active Substance: QUETIAPINE
     Indication: Sleep apnoea syndrome
     Dosage: 2 TABLETS BEFORE GO TO SLEEP, QD
     Route: 048
     Dates: start: 202308

REACTIONS (7)
  - Asphyxia [Not Recovered/Not Resolved]
  - Abdominal pain [Not Recovered/Not Resolved]
  - Cough [Not Recovered/Not Resolved]
  - Chest pain [Not Recovered/Not Resolved]
  - Dyspnoea [Not Recovered/Not Resolved]
  - Product dose omission issue [Unknown]
  - Product supply issue [Unknown]

NARRATIVE: CASE EVENT DATE: 20240224
